FAERS Safety Report 13877115 (Version 1)
Quarter: 2017Q3

REPORT INFORMATION
  Report Type: Spontaneous
  Country: US (occurrence: US)
  Receive Date: 20170817
  Receipt Date: 20170817
  Transmission Date: 20171127
  Serious: Yes (Other)
  Sender: FDA-Public Use
  Company Number: US-GLAXOSMITHKLINE-US2017GSK127097

PATIENT
  Sex: Male

DRUGS (2)
  1. TYLENOL WITH CODEINE [Suspect]
     Active Substance: ACETAMINOPHEN\CODEINE PHOSPHATE
  2. VOLTAREN [Suspect]
     Active Substance: DICLOFENAC SODIUM

REACTIONS (3)
  - Drug ineffective [Unknown]
  - Constipation [Unknown]
  - Renal impairment [Unknown]
